FAERS Safety Report 12760350 (Version 1)
Quarter: 2016Q3

REPORT INFORMATION
  Report Type: Spontaneous
  Country: US (occurrence: US)
  Receive Date: 20160919
  Receipt Date: 20160919
  Transmission Date: 20161109
  Serious: Yes (Other)
  Sender: FDA-Public Use
  Company Number: US-PFIZER INC-2016433849

PATIENT
  Age: 52 Year
  Sex: Male
  Weight: 111.13 kg

DRUGS (2)
  1. TRIAZOLAM. [Concomitant]
     Active Substance: TRIAZOLAM
     Indication: INSOMNIA
     Dosage: 0.25 MG, 3X/DAY THREE TIMES AT NIGHT
     Route: 048
     Dates: start: 1986
  2. PRISTIQ EXTENDED-RELEASE [Suspect]
     Active Substance: DESVENLAFAXINE SUCCINATE
     Indication: DEPRESSION
     Dosage: 50 MG, 1X/DAY  (ONCE AT NIGHT TIME)
     Route: 048
     Dates: start: 20160721

REACTIONS (3)
  - Urine output decreased [Not Recovered/Not Resolved]
  - Urinary retention [Not Recovered/Not Resolved]
  - Dysuria [Not Recovered/Not Resolved]
